FAERS Safety Report 9415753 (Version 1)
Quarter: 2013Q3

REPORT INFORMATION
  Report Type: Spontaneous
  Country: US (occurrence: US)
  Receive Date: 20130724
  Receipt Date: 20130724
  Transmission Date: 20140515
  Serious: No
  Sender: FDA-Public Use
  Company Number: US-B.I. PHARMACEUTICALS,INC./RIDGEFIELD-2013-BI-21361BP

PATIENT
  Age: 69 Year
  Sex: Male

DRUGS (10)
  1. SPIRIVA [Suspect]
     Indication: CHRONIC OBSTRUCTIVE PULMONARY DISEASE
     Dosage: 18 MCG
     Route: 055
     Dates: start: 20130716
  2. POTASSIUM [Concomitant]
     Route: 048
  3. VITAMIN D [Concomitant]
     Route: 048
  4. CENTRUM [Concomitant]
  5. MUCINEX [Concomitant]
  6. SIMVASTATIN [Concomitant]
     Indication: BLOOD CHOLESTEROL INCREASED
     Dosage: 40 MG
     Route: 048
  7. ASPIRIN [Concomitant]
     Route: 048
  8. CARVEDILOL [Concomitant]
     Indication: HYPERTENSION
     Dosage: 3.125 MG
     Route: 048
  9. LASIX [Concomitant]
     Dosage: 20 MG
     Route: 048
  10. CILOSTAZOL [Concomitant]
     Dosage: 200 MG
     Route: 048

REACTIONS (2)
  - Chest discomfort [Not Recovered/Not Resolved]
  - Dyspnoea [Not Recovered/Not Resolved]
